FAERS Safety Report 6975162-2 (Version None)
Quarter: 2010Q3

REPORT INFORMATION
  Report Type: 
  Country: None (occurrence: None)
  Receive Date: 20100910
  Receipt Date: 20090519
  Transmission Date: 20110219
  Serious: No
  Sender: FDA-Public Use
  Company Number: US-WYE-H08099809

PATIENT
  Sex: Female
  Weight: 99.88 kg

DRUGS (5)
  1. PRISTIQ [Suspect]
     Indication: DEPRESSION
     Route: 048
     Dates: start: 20081201, end: 20090101
  2. ACIPHEX [Concomitant]
  3. OXYCODONE HCL [Concomitant]
  4. LEXAPRO [Concomitant]
  5. KLONOPIN [Concomitant]

REACTIONS (4)
  - DYSKINESIA [None]
  - MUSCLE SPASMS [None]
  - TONIC CLONIC MOVEMENTS [None]
  - UNEVALUABLE EVENT [None]
